FAERS Safety Report 26061207 (Version 1)
Quarter: 2025Q4

REPORT INFORMATION
  Report Type: Spontaneous
  Country: CA (occurrence: CA)
  Receive Date: 20251118
  Receipt Date: 20251118
  Transmission Date: 20260118
  Serious: Yes (Other)
  Sender: MYLAN
  Company Number: CA-MYLANLABS-2025M1097055

PATIENT
  Age: 83 Year
  Sex: Female

DRUGS (20)
  1. FONDAPARINUX [Interacting]
     Active Substance: FONDAPARINUX
     Indication: Product used for unknown indication
     Dosage: 2.5 MILLIGRAM, QD (ONCE DAILY)
  2. FONDAPARINUX [Interacting]
     Active Substance: FONDAPARINUX
     Dosage: 2.5 MILLIGRAM, QD (ONCE DAILY)
     Route: 058
  3. FONDAPARINUX [Interacting]
     Active Substance: FONDAPARINUX
     Dosage: 2.5 MILLIGRAM, QD (ONCE DAILY)
     Route: 058
  4. FONDAPARINUX [Interacting]
     Active Substance: FONDAPARINUX
     Dosage: 2.5 MILLIGRAM, QD (ONCE DAILY)
  5. ASPIRIN [Interacting]
     Active Substance: ASPIRIN
     Indication: Product used for unknown indication
     Dosage: UNK
  6. ASPIRIN [Interacting]
     Active Substance: ASPIRIN
     Dosage: UNK
     Route: 065
  7. ASPIRIN [Interacting]
     Active Substance: ASPIRIN
     Dosage: UNK
     Route: 065
  8. ASPIRIN [Interacting]
     Active Substance: ASPIRIN
     Dosage: UNK
  9. HEPARIN [Interacting]
     Active Substance: HEPARIN SODIUM
     Indication: Catheterisation cardiac
     Dosage: 3000 INTERNATIONAL UNIT
  10. HEPARIN [Interacting]
     Active Substance: HEPARIN SODIUM
     Dosage: 3000 INTERNATIONAL UNIT
     Route: 065
  11. HEPARIN [Interacting]
     Active Substance: HEPARIN SODIUM
     Dosage: 3000 INTERNATIONAL UNIT
     Route: 065
  12. HEPARIN [Interacting]
     Active Substance: HEPARIN SODIUM
     Dosage: 3000 INTERNATIONAL UNIT
  13. CIPROFLOXACIN [Concomitant]
     Active Substance: CIPROFLOXACIN
     Dosage: UNK
  14. CIPROFLOXACIN [Concomitant]
     Active Substance: CIPROFLOXACIN
     Dosage: UNK
     Route: 065
  15. CIPROFLOXACIN [Concomitant]
     Active Substance: CIPROFLOXACIN
     Dosage: UNK
     Route: 065
  16. CIPROFLOXACIN [Concomitant]
     Active Substance: CIPROFLOXACIN
     Dosage: UNK
  17. RIVAROXABAN [Concomitant]
     Active Substance: RIVAROXABAN
     Dosage: UNK
  18. RIVAROXABAN [Concomitant]
     Active Substance: RIVAROXABAN
     Dosage: UNK
     Route: 065
  19. RIVAROXABAN [Concomitant]
     Active Substance: RIVAROXABAN
     Dosage: UNK
     Route: 065
  20. RIVAROXABAN [Concomitant]
     Active Substance: RIVAROXABAN
     Dosage: UNK

REACTIONS (4)
  - Blood loss anaemia [Unknown]
  - Procedural haemorrhage [Unknown]
  - Thrombocytopenia [Unknown]
  - Labelled drug-drug interaction issue [Unknown]
